FAERS Safety Report 8563863-4 (Version None)
Quarter: 2012Q3

REPORT INFORMATION
  Report Type: 
  Country: None (occurrence: None)
  Receive Date: 20120727
  Receipt Date: 20120727
  Transmission Date: 20120928
  Serious: Yes (Life-Threatening)
  Sender: FDA-Public Use
  Company Number: None

PATIENT
  Sex: Male
  Weight: 89.8122 kg

DRUGS (1)
  1. MULTAQ [Suspect]
     Dosage: 400MG TWICE DAILY PO
     Route: 048
     Dates: start: 20101028, end: 20120714

REACTIONS (2)
  - PALPITATIONS [None]
  - ARRHYTHMIA [None]
